FAERS Safety Report 6383510-X (Version None)
Quarter: 2009Q4

REPORT INFORMATION
  Report Type: 
  Country: None (occurrence: None)
  Receive Date: 20091001
  Receipt Date: 20090909
  Transmission Date: 20100525
  Serious: No
  Sender: FDA-Public Use
  Company Number: US-ROCHE-653722

PATIENT
  Sex: Male
  Weight: 74.8 kg

DRUGS (3)
  1. TAMIFLU [Suspect]
     Route: 048
     Dates: start: 20090831, end: 20090831
  2. TAMIFLU [Suspect]
     Route: 048
     Dates: start: 20090901, end: 20090901
  3. TAMIFLU [Suspect]
     Route: 048
     Dates: end: 20090905

REACTIONS (2)
  - INCORRECT DOSE ADMINISTERED [None]
  - NO ADVERSE EVENT [None]
